FAERS Safety Report 4542587-4 (Version None)
Quarter: 2004Q4

REPORT INFORMATION
  Report Type: 
  Country: None (occurrence: None)
  Receive Date: 20041223
  Receipt Date: 20041004
  Transmission Date: 20050328
  Serious: No
  Sender: FDA-Public Use
  Company Number: US-JNJFOC-20041001476

PATIENT
  Age: 30 Year
  Sex: Female

DRUGS (3)
  1. ORTHO EVRA [Suspect]
     Indication: CONTRACEPTION
     Dosage: 1 DOSE(S), 3 IN 4 WEEK, TRANSDERMAL
     Route: 062
     Dates: start: 20040701
  2. MULTI VITAMIN (MULTIVITAMINS) [Concomitant]
  3. ANTI DEPRESSANT (ANTIDEPRESSANTS) [Concomitant]

REACTIONS (1)
  - FUNGAL INFECTION [None]
